FAERS Safety Report 20226119 (Version 1)
Quarter: 2021Q4

REPORT INFORMATION
  Report Type: Spontaneous
  Country: DE (occurrence: DE)
  Receive Date: 20211224
  Receipt Date: 20211224
  Transmission Date: 20220303
  Serious: Yes (Other)
  Sender: FDA-Public Use
  Company Number: None

PATIENT
  Sex: Female

DRUGS (2)
  1. PLENVU [Suspect]
     Active Substance: ASCORBIC ACID\POLYETHYLENE GLYCOL 3350\POTASSIUM CHLORIDE\SODIUM ASCORBATE\SODIUM CHLORIDE\SODIUM SU
     Indication: Bowel preparation
     Dosage: DOSE 1 AND DOSE 2  (SACHETS A+B)
     Route: 048
     Dates: start: 20211205, end: 20211205
  2. PLENVU [Suspect]
     Active Substance: ASCORBIC ACID\POLYETHYLENE GLYCOL 3350\POTASSIUM CHLORIDE\SODIUM ASCORBATE\SODIUM CHLORIDE\SODIUM SU
     Indication: Colonoscopy

REACTIONS (7)
  - Angina pectoris [Unknown]
  - Muscular weakness [Unknown]
  - Blood pressure increased [Unknown]
  - Mobility decreased [Unknown]
  - Retching [Unknown]
  - Palpitations [Unknown]
  - Anorectal discomfort [Unknown]
